FAERS Safety Report 9746494 (Version 3)
Quarter: 2014Q1

REPORT INFORMATION
  Report Type: Spontaneous
  Country: US (occurrence: US)
  Receive Date: 20131211
  Receipt Date: 20140210
  Transmission Date: 20141002
  Serious: Yes (Hospitalization)
  Sender: FDA-Public Use
  Company Number: US-BAYER-2013-150570

PATIENT
  Age: 37 Year
  Sex: Female
  Weight: 108.84 kg

DRUGS (11)
  1. YAZ [Suspect]
     Indication: ACNE
     Dosage: UNK
     Dates: start: 20080311, end: 20110817
  2. YAZ [Suspect]
     Indication: PREMENSTRUAL SYNDROME
  3. YASMIN [Suspect]
     Indication: ACNE
     Dosage: UNK
     Dates: start: 20080311, end: 20110817
  4. YASMIN [Suspect]
     Indication: PREMENSTRUAL SYNDROME
  5. FLEXERIL [Concomitant]
  6. ASPIRIN [Concomitant]
  7. MOTRIN [Concomitant]
  8. CYCLOBENZAPRINE [Concomitant]
     Dosage: 10 MG, PRN
  9. TRAMADOL [Concomitant]
     Dosage: 50 MG, PRN
  10. NABUMETONE [Concomitant]
     Dosage: ONE TABLET PRN
  11. HYDROCODONE [Concomitant]
     Indication: PAIN

REACTIONS (6)
  - Deep vein thrombosis [None]
  - Injury [None]
  - Pain [None]
  - Pain [None]
  - Pain in extremity [None]
  - Pain [None]
